FAERS Safety Report 18592291 (Version 2)
Quarter: 2020Q4

REPORT INFORMATION
  Report Type: Report from Study
  Country: IT (occurrence: IT)
  Receive Date: 20201208
  Receipt Date: 20201227
  Transmission Date: 20210114
  Serious: Yes (Hospitalization)
  Sender: FDA-Public Use
  Company Number: IT-TEVA-2020-IT-1855652

PATIENT
  Age: 77 Year
  Sex: Male

DRUGS (13)
  1. ANAFRANIL [Concomitant]
     Active Substance: CLOMIPRAMINE HYDROCHLORIDE
  2. RAMIPRIL. [Concomitant]
     Active Substance: RAMIPRIL
     Dosage: 2.5MG
  3. VOLTAREN [Concomitant]
     Active Substance: DICLOFENAC SODIUM
     Indication: BACK PAIN
  4. BISOPROLOL HEMIFUMARATE [Concomitant]
     Active Substance: BISOPROLOL FUMARATE
     Dosage: 5MG
  5. REVINTY ELLIPTA [Concomitant]
     Active Substance: FLUTICASONE FUROATE\VILANTEROL TRIFENATATE
  6. KLACID [Concomitant]
     Active Substance: CLARITHROMYCIN
     Indication: COUGH
  7. MUSCORIL [Concomitant]
     Active Substance: THIOCOLCHICOSIDE
     Indication: BACK PAIN
  8. CLOPIDOGREL [Suspect]
     Active Substance: CLOPIDOGREL BISULFATE
     Dosage: 75MG
     Route: 048
     Dates: start: 20200101, end: 20201104
  9. PRADAXA [Suspect]
     Active Substance: DABIGATRAN ETEXILATE MESYLATE
     Indication: ATRIAL FIBRILLATION
     Dosage: 220MG
     Route: 048
     Dates: start: 20200101, end: 20201104
  10. LASIX [Concomitant]
     Active Substance: FUROSEMIDE
     Dosage: 25MG
  11. RANEXA [Concomitant]
     Active Substance: RANOLAZINE
     Dosage: 2 DOSAGE FORMS
  12. LAROXYL [Concomitant]
     Active Substance: AMITRIPTYLINE HYDROCHLORIDE
  13. FOLINA [Concomitant]
     Dosage: 5MG

REACTIONS (2)
  - Normocytic anaemia [Unknown]
  - Petechiae [Unknown]

NARRATIVE: CASE EVENT DATE: 20201104
